FAERS Safety Report 25226302 (Version 1)
Quarter: 2025Q2

REPORT INFORMATION
  Report Type: Spontaneous
  Country: GB (occurrence: None)
  Receive Date: 20250422
  Receipt Date: 20250422
  Transmission Date: 20250717
  Serious: Yes (Other)
  Sender: ACS DOBFAR
  Company Number: GB-MLMSERVICE-20250404-PI469719-00090-1

PATIENT
  Age: 82 Year
  Sex: Male

DRUGS (1)
  1. CEFUROXIME [Suspect]
     Active Substance: CEFUROXIME
     Route: 031

REACTIONS (3)
  - Maculopathy [Recovered/Resolved]
  - Serous retinal detachment [Recovered/Resolved]
  - Off label use [Recovered/Resolved]
